FAERS Safety Report 25964598 (Version 1)
Quarter: 2025Q4

REPORT INFORMATION
  Report Type: Spontaneous
  Country: EU (occurrence: EU)
  Receive Date: 20251027
  Receipt Date: 20251027
  Transmission Date: 20260117
  Serious: Yes (Other)
  Sender: IPSEN BIOPHARMACEUTICALS, INC.
  Company Number: None

PATIENT
  Age: 70 Year
  Sex: Male

DRUGS (7)
  1. IRINOTECAN [Suspect]
     Active Substance: IRINOTECAN
     Indication: Pancreatic carcinoma recurrent
     Dosage: 14-DAY CYCLE
     Dates: start: 202201
  2. IRINOTECAN [Suspect]
     Active Substance: IRINOTECAN
     Dosage: 21-DAY CYCLE
  3. FLUOROURACIL [Suspect]
     Active Substance: FLUOROURACIL
     Indication: Ductal adenocarcinoma of pancreas
     Dosage: EVERY 2 WEEKS
     Dates: start: 202201
  4. CAPECITABINE [Suspect]
     Active Substance: CAPECITABINE
     Indication: Pancreatic carcinoma recurrent
     Dosage: 14-DAY CYCLE
     Dates: start: 202201
  5. CAPECITABINE [Suspect]
     Active Substance: CAPECITABINE
     Indication: Metastases to liver
     Dosage: 21-DAY CYCLE
  6. LEUCOVORIN [Suspect]
     Active Substance: LEUCOVORIN\LEUCOVORIN CALCIUM
     Indication: Pancreatic carcinoma recurrent
     Dosage: 14-DAY CYCLE
     Dates: start: 202201
  7. LEUCOVORIN [Suspect]
     Active Substance: LEUCOVORIN\LEUCOVORIN CALCIUM
     Indication: Metastases to liver
     Dosage: 21-DAY CYCLE

REACTIONS (7)
  - Enterocolitis [Recovered/Resolved]
  - Gastrointestinal toxicity [Recovered/Resolved]
  - Product use issue [Recovered/Resolved]
  - Fatigue [Recovered/Resolved]
  - Asthenia [Recovered/Resolved]
  - Palmar-plantar erythrodysaesthesia syndrome [Recovered/Resolved]
  - Abdominal pain [Recovered/Resolved]

NARRATIVE: CASE EVENT DATE: 20220101
